FAERS Safety Report 24926201 (Version 2)
Quarter: 2025Q1

REPORT INFORMATION
  Report Type: Spontaneous
  Country: US (occurrence: US)
  Receive Date: 20250205
  Receipt Date: 20250317
  Transmission Date: 20250409
  Serious: Yes (Other)
  Sender: ABBVIE
  Company Number: US-OTSUKA-2024_030592

PATIENT
  Age: 19 Year
  Sex: Female

DRUGS (9)
  1. VRAYLAR [Suspect]
     Active Substance: CARIPRAZINE
     Indication: Product used for unknown indication
     Route: 048
  2. REXULTI [Suspect]
     Active Substance: BREXPIPRAZOLE
     Indication: Bipolar I disorder
     Dosage: 1.5 MG, QD (AT BEDTIME) WEEK 4
     Route: 048
     Dates: start: 20240929, end: 20241005
  3. REXULTI [Suspect]
     Active Substance: BREXPIPRAZOLE
     Indication: Bipolar I disorder
     Dosage: 1 MG, QD (AT BEDTIME) WEEK 3
     Route: 048
     Dates: start: 202409, end: 202409
  4. REXULTI [Suspect]
     Active Substance: BREXPIPRAZOLE
     Indication: Bipolar I disorder
     Dosage: 0.5 MG, QD (AT BEDTIME) WEEK 1?LAST ADMIN DATE: SEP 2024
     Route: 048
     Dates: start: 20240905
  5. REXULTI [Suspect]
     Active Substance: BREXPIPRAZOLE
     Indication: Bipolar I disorder
     Dosage: 0.75 MG, QD (AT BEDTIME) WEEK 2
     Route: 048
     Dates: start: 202409, end: 202409
  6. PROBIOTICS NOS [Concomitant]
     Active Substance: PROBIOTICS NOS
     Indication: Product used for unknown indication
     Route: 065
  7. GEODON [Suspect]
     Active Substance: ZIPRASIDONE HYDROCHLORIDE\ZIPRASIDONE MESYLATE
     Indication: Product used for unknown indication
     Route: 065
  8. ABILIFY [Suspect]
     Active Substance: ARIPIPRAZOLE
     Indication: Product used for unknown indication
     Route: 065
     Dates: start: 2023
  9. VITAMIN C [Concomitant]
     Active Substance: ASCORBIC ACID
     Indication: Product used for unknown indication
     Route: 065

REACTIONS (13)
  - Loss of consciousness [Recovered/Resolved]
  - Nausea [Recovered/Resolved]
  - Self-injurious ideation [Recovered/Resolved]
  - Abdominal pain upper [Not Recovered/Not Resolved]
  - Manic symptom [Recovered/Resolved]
  - Anger [Recovered/Resolved]
  - Akathisia [Recovered/Resolved]
  - Weight decreased [Recovered/Resolved]
  - Diarrhoea [Recovered/Resolved]
  - Dehydration [Recovered/Resolved]
  - Extrapyramidal disorder [Recovered/Resolved]
  - Irritability [Recovered/Resolved]
  - Neuroleptic malignant syndrome [Recovered/Resolved]

NARRATIVE: CASE EVENT DATE: 20240905
